FAERS Safety Report 4387798-6 (Version None)
Quarter: 2004Q2

REPORT INFORMATION
  Report Type: 
  Country: None (occurrence: None)
  Receive Date: 20040630
  Receipt Date: 20040601
  Transmission Date: 20050107
  Serious: Yes (Other)
  Sender: FDA-Public Use
  Company Number: JP-GLAXOSMITHKLINE-B0334579A

PATIENT
  Sex: Female

DRUGS (1)
  1. MODACIN [Suspect]
     Dosage: 1G PER DAY
     Route: 042
     Dates: start: 20040531, end: 20040531

REACTIONS (7)
  - ANAPHYLACTOID REACTION [None]
  - BLEPHARITIS [None]
  - OROPHARYNGEAL SWELLING [None]
  - PHARMACEUTICAL PRODUCT COMPLAINT [None]
  - PHARYNGOLARYNGEAL PAIN [None]
  - RASH [None]
  - SHOCK [None]
